FAERS Safety Report 9861354 (Version 27)
Quarter: 2017Q1

REPORT INFORMATION
  Report Type: Spontaneous
  Country: CA (occurrence: CA)
  Receive Date: 20140203
  Receipt Date: 20170321
  Transmission Date: 20170429
  Serious: Yes (Other)
  Sender: FDA-Public Use
  Company Number: CA-ROCHE-1327278

PATIENT
  Age: 58 Year
  Sex: Female
  Weight: 106 kg

DRUGS (27)
  1. XOLAIR [Suspect]
     Active Substance: OMALIZUMAB
     Dosage: UNK
     Route: 058
     Dates: start: 20161220
  2. XOLAIR [Suspect]
     Active Substance: OMALIZUMAB
     Dosage: UNK
     Route: 058
     Dates: start: 20170103
  3. VICTOZA [Suspect]
     Active Substance: LIRAGLUTIDE
     Indication: DIABETES MELLITUS
     Route: 065
     Dates: start: 201407
  4. XOLAIR [Suspect]
     Active Substance: OMALIZUMAB
     Dosage: UNK
     Route: 058
     Dates: start: 20130716
  5. XOLAIR [Suspect]
     Active Substance: OMALIZUMAB
     Dosage: UNK
     Route: 058
     Dates: start: 20161025
  6. XOLAIR [Suspect]
     Active Substance: OMALIZUMAB
     Route: 058
  7. SYMBICORT [Concomitant]
     Active Substance: BUDESONIDE\FORMOTEROL FUMARATE DIHYDRATE
     Indication: PRODUCT USED FOR UNKNOWN INDICATION
     Route: 065
  8. XOLAIR [Suspect]
     Active Substance: OMALIZUMAB
     Indication: ASTHMA
     Dosage: 300 MG, BIW
     Route: 058
     Dates: start: 20130702
  9. XOLAIR [Suspect]
     Active Substance: OMALIZUMAB
     Route: 058
     Dates: start: 20170131
  10. PREDNISONE. [Suspect]
     Active Substance: PREDNISONE
     Indication: SECRETION DISCHARGE
     Dosage: UNK
     Route: 065
     Dates: start: 20140920, end: 20140920
  11. PREDNISONE. [Suspect]
     Active Substance: PREDNISONE
     Indication: NASOPHARYNGITIS
     Dosage: 20 MG, QD
     Route: 065
  12. PREDNISONE. [Suspect]
     Active Substance: PREDNISONE
     Dosage: 35 MG, QD, FOR 20 DAYS
     Route: 065
  13. VENTOLIN [Concomitant]
     Active Substance: ALBUTEROL SULFATE
     Indication: DYSPNOEA
     Dosage: PRN
     Route: 065
  14. XOLAIR [Suspect]
     Active Substance: OMALIZUMAB
     Dosage: UNK
     Route: 058
     Dates: start: 20150224
  15. XOLAIR [Suspect]
     Active Substance: OMALIZUMAB
     Dosage: UNK
     Route: 058
     Dates: start: 20160920
  16. XOLAIR [Suspect]
     Active Substance: OMALIZUMAB
     Dosage: UNK
     Route: 058
     Dates: start: 20161011
  17. XOLAIR [Suspect]
     Active Substance: OMALIZUMAB
     Dosage: UNK
     Route: 058
     Dates: start: 20160726
  18. ALVESCO [Concomitant]
     Active Substance: CICLESONIDE
     Indication: PRODUCT USED FOR UNKNOWN INDICATION
     Route: 065
  19. XOLAIR [Suspect]
     Active Substance: OMALIZUMAB
     Dosage: UNK
     Route: 058
     Dates: start: 20160308
  20. PREDNISONE. [Suspect]
     Active Substance: PREDNISONE
     Indication: PULMONARY CONGESTION
     Dosage: UNK
     Route: 065
     Dates: start: 20150612
  21. PREDNISONE. [Suspect]
     Active Substance: PREDNISONE
     Indication: SECRETION DISCHARGE
     Dosage: 50 MG, QD
     Route: 065
  22. XOLAIR [Suspect]
     Active Substance: OMALIZUMAB
     Dosage: 300 MG, BIW
     Route: 058
     Dates: start: 2014
  23. XOLAIR [Suspect]
     Active Substance: OMALIZUMAB
     Dosage: UNK
     Route: 058
     Dates: start: 20161122
  24. CORTISONE [Concomitant]
     Active Substance: CORTISONE\HYDROCORTISONE
     Indication: PRODUCT USED FOR UNKNOWN INDICATION
     Route: 065
  25. XOLAIR [Suspect]
     Active Substance: OMALIZUMAB
     Dosage: 375 MG (ALTHOUGH NEW PRESCRIPTION WAS FOR 300 MG)
     Route: 058
     Dates: start: 2014
  26. XOLAIR [Suspect]
     Active Substance: OMALIZUMAB
     Dosage: UNK
     Route: 058
     Dates: start: 20160629
  27. PREDNISONE. [Suspect]
     Active Substance: PREDNISONE
     Dosage: UNK
     Route: 065
     Dates: end: 20170130

REACTIONS (35)
  - Gastroenteritis [Unknown]
  - Headache [Unknown]
  - Pain [Unknown]
  - Productive cough [Unknown]
  - Insomnia [Unknown]
  - Oropharyngeal pain [Unknown]
  - Paraesthesia [Recovered/Resolved]
  - Diabetes mellitus inadequate control [Unknown]
  - Influenza [Recovering/Resolving]
  - Pharyngeal oedema [Recovered/Resolved]
  - Fatigue [Unknown]
  - Weight increased [Unknown]
  - Diabetes mellitus [Unknown]
  - Respiratory disorder [Unknown]
  - Cough [Unknown]
  - Decreased appetite [Unknown]
  - Gastrooesophageal reflux disease [Unknown]
  - Viral infection [Unknown]
  - Heart rate increased [Unknown]
  - Respiratory tract infection [Not Recovered/Not Resolved]
  - Pneumonia [Unknown]
  - Dyspnoea [Recovering/Resolving]
  - Myalgia [Unknown]
  - Malaise [Unknown]
  - Arthralgia [Unknown]
  - Bronchitis [Recovering/Resolving]
  - Hyperhidrosis [Unknown]
  - Joint swelling [Unknown]
  - Secretion discharge [Unknown]
  - Back pain [Recovering/Resolving]
  - Palpitations [Unknown]
  - Chest pain [Recovered/Resolved]
  - Bone pain [Unknown]
  - Pulmonary congestion [Unknown]
  - Weight decreased [Not Recovered/Not Resolved]

NARRATIVE: CASE EVENT DATE: 20130702
